FAERS Safety Report 7944386 (Version 4)
Quarter: 2012Q4

REPORT INFORMATION
  Report Type: Report from Study
  Country: IN (occurrence: US)
  Receive Date: 20110513
  Receipt Date: 20121219
  Transmission Date: 20130627
  Serious: Yes (Death, Life-Threatening, Hospitalization, Other)
  Sender: FDA-Public Use
  Company Number: US-BRISTOL-MYERS SQUIBB COMPANY-15274251

PATIENT
  Age: 57 Year
  Sex: Male

DRUGS (14)
  1. IPILIMUMAB [Suspect]
     Indication: MALIGNANT MELANOMA
     Dosage: Intrrupted on 03Sep2010,Dosage:323mg
     Route: 042
     Dates: start: 20100723, end: 20100903
  2. IMODIUM [Concomitant]
  3. SOLU-MEDROL [Concomitant]
     Route: 042
     Dates: start: 20100903, end: 20100909
  4. PREDNISONE [Concomitant]
     Route: 048
     Dates: start: 20100909
  5. LOMOTIL [Concomitant]
     Dosage: 1DF=2.5/0.025mg
     Dates: start: 20100826
  6. DEXAMETHASONE [Concomitant]
     Dates: start: 20100910, end: 20101021
  7. DORIPENEM [Concomitant]
     Dates: start: 20101001, end: 20101010
  8. IPRATROPIUM + ALBUTEROL [Concomitant]
     Dates: start: 20100930, end: 20101021
  9. ACYCLOVIR [Concomitant]
     Dates: start: 20101005, end: 20101015
  10. MICAFUNGIN SODIUM [Concomitant]
     Dates: start: 20101009, end: 20101019
  11. TIGECYCLINE [Concomitant]
     Dates: start: 20100929, end: 20101009
  12. VFEND [Concomitant]
     Dates: start: 20101007, end: 20101017
  13. AMPHOTERICIN B [Concomitant]
     Dates: start: 20101016, end: 20101021
  14. AMPICILLIN [Concomitant]
     Dates: start: 20101013, end: 20101021

REACTIONS (4)
  - Pneumonitis [Fatal]
  - Lung infiltration [Fatal]
  - Central nervous system haemorrhage [Recovered/Resolved]
  - Diarrhoea [Not Recovered/Not Resolved]
